FAERS Safety Report 6383039-9 (Version None)
Quarter: 2009Q3

REPORT INFORMATION
  Report Type: 
  Country: None (occurrence: None)
  Receive Date: 20090930
  Receipt Date: 20090921
  Transmission Date: 20100115
  Serious: Yes (Hospitalization)
  Sender: FDA-Public Use
  Company Number: US-AMGEN-QUU365641

PATIENT
  Sex: Female

DRUGS (1)
  1. ENBREL [Suspect]
     Indication: RHEUMATOID ARTHRITIS
     Route: 058
     Dates: start: 20000901

REACTIONS (7)
  - CERVIX DISORDER [None]
  - EXPOSURE TO COMMUNICABLE DISEASE [None]
  - HYPERTENSION [None]
  - RHEUMATOID ARTHRITIS [None]
  - UTERINE HAEMORRHAGE [None]
  - UTERINE LEIOMYOMA [None]
  - WEIGHT INCREASED [None]
